FAERS Safety Report 5782781-8 (Version None)
Quarter: 2008Q2

REPORT INFORMATION
  Report Type: 
  Country: None (occurrence: None)
  Receive Date: 20080624
  Receipt Date: 20080617
  Transmission Date: 20081010
  Serious: Yes (Other)
  Sender: FDA-Public Use
  Company Number: GB-RANBAXY-2007RR-07344

PATIENT

DRUGS (1)
  1. ISOTRETINOIN [Suspect]

REACTIONS (1)
  - PREGNANCY [None]
